FAERS Safety Report 8051919-4 (Version None)
Quarter: 2012Q1

REPORT INFORMATION
  Report Type: 
  Country: None (occurrence: None)
  Receive Date: 20120111
  Receipt Date: 20120104
  Transmission Date: 20120608
  Serious: Yes (Other)
  Sender: FDA-Public Use
  Company Number: 2012MA000193

PATIENT
  Age: 80 Year
  Sex: Female

DRUGS (5)
  1. COUMADIN [Concomitant]
  2. CANRENONE [Concomitant]
  3. LOSARTAN POTASSIUM [Suspect]
     Indication: PRODUCT USED FOR UNKNOWN INDICATION
     Dosage: 50 MG, QD, PO
     Route: 048
     Dates: start: 20100826, end: 20110825
  4. METFORMIN [Concomitant]
  5. FUROSEMIDE [Concomitant]

REACTIONS (2)
  - BLOOD POTASSIUM DECREASED [None]
  - RENAL FAILURE [None]
